FAERS Safety Report 5878587-1 (Version None)
Quarter: 2008Q3

REPORT INFORMATION
  Report Type: 
  Country: None (occurrence: None)
  Receive Date: 20080909
  Receipt Date: 20080903
  Transmission Date: 20090109
  Serious: Yes (Disabling)
  Sender: FDA-Public Use
  Company Number: 2008SP000344

PATIENT
  Age: 70 Year
  Sex: Male
  Weight: 58 kg

DRUGS (14)
  1. TEMODAL [Suspect]
     Indication: GLIOBLASTOMA MULTIFORME
     Dosage: 72 MG/M2; QD; PO, 150 MG/M2; QD; PO
     Route: 048
     Dates: start: 20061128, end: 20070108
  2. TEMODAL [Suspect]
     Indication: GLIOBLASTOMA MULTIFORME
     Dosage: 72 MG/M2; QD; PO, 150 MG/M2; QD; PO
     Route: 048
     Dates: start: 20070206, end: 20070210
  3. TEMODAL [Suspect]
     Indication: GLIOBLASTOMA MULTIFORME
     Dosage: 72 MG/M2; QD; PO, 150 MG/M2; QD; PO
     Route: 048
     Dates: start: 20070306, end: 20070310
  4. COTRIM [Concomitant]
  5. COTRIM [Concomitant]
  6. PHENOBARBITAL TAB [Concomitant]
  7. FAMOTIDINE [Concomitant]
  8. SODIUM CHLORIDE 0.9% [Concomitant]
  9. MAGNESIUM OXIDE [Concomitant]
  10. SENNOSIDE [Concomitant]
  11. FLOMOX [Concomitant]
  12. ACETAMINOPHEN [Concomitant]
  13. DASEN [Concomitant]
  14. MAGLAX [Concomitant]

REACTIONS (6)
  - CONDITION AGGRAVATED [None]
  - DEPRESSED LEVEL OF CONSCIOUSNESS [None]
  - GENERAL PHYSICAL CONDITION ABNORMAL [None]
  - HYPOPHAGIA [None]
  - NEOPLASM PROGRESSION [None]
  - OEDEMA [None]
